FAERS Safety Report 14600353 (Version 1)
Quarter: 2018Q1

REPORT INFORMATION
  Report Type: Report from Study
  Country: IN (occurrence: IN)
  Receive Date: 20180305
  Receipt Date: 20180305
  Transmission Date: 20180509
  Serious: Yes (Life-Threatening, Other)
  Sender: FDA-Public Use
  Company Number: IN-MYLANLABS-2018M1013834

PATIENT
  Sex: Male

DRUGS (1)
  1. DACTINOMYCIN [Suspect]
     Active Substance: DACTINOMYCIN
     Indication: NEPHROBLASTOMA
     Dosage: 22.5 MICROG/KG SINGLE DOSE
     Route: 040

REACTIONS (4)
  - Shock [Recovered/Resolved]
  - Respiratory distress [Recovered/Resolved]
  - Venoocclusive liver disease [Recovered/Resolved]
  - Encephalopathy [Recovered/Resolved]
